FAERS Safety Report 5838594-1 (Version None)
Quarter: 2008Q3

REPORT INFORMATION
  Report Type: 
  Country: None (occurrence: None)
  Receive Date: 20080808
  Receipt Date: 20080515
  Transmission Date: 20090109
  Serious: No
  Sender: FDA-Public Use
  Company Number: A0728093A

PATIENT
  Age: 72 Year
  Sex: Male

DRUGS (3)
  1. ALTABAX [Suspect]
     Indication: FACIAL PAIN
     Dosage: 1APP TWICE PER DAY
     Route: 061
     Dates: start: 20080513
  2. ALTACE [Concomitant]
  3. FLOMAX [Concomitant]

REACTIONS (2)
  - DRUG INEFFECTIVE [None]
  - PAIN [None]
